FAERS Safety Report 7807139-9 (Version None)
Quarter: 2011Q4

REPORT INFORMATION
  Report Type: 
  Country: None (occurrence: None)
  Receive Date: 20111011
  Receipt Date: 20110927
  Transmission Date: 20120403
  Serious: Yes (Other)
  Sender: FDA-Public Use
  Company Number: PHHY2011JP82631

PATIENT
  Age: 69 Year
  Sex: Female

DRUGS (4)
  1. VALSARTAN [Suspect]
     Indication: HYPERTENSION
     Dosage: 80 MG, UNK
  2. AZELNIDIPINE [Suspect]
     Indication: HYPERTENSION
     Dosage: 8 MG, UNK
  3. METOPROLOL TARTRATE [Suspect]
     Indication: HYPERTENSION
     Dosage: 80 MG, UNK
  4. IMIDAPRIL HYDROCHLORIDE [Suspect]
     Indication: HYPERTENSION
     Dosage: 5 MG, UNK

REACTIONS (8)
  - HYPERTENSION [None]
  - HYPOKALAEMIA [None]
  - HYPOALDOSTERONISM [None]
  - LIDDLE'S SYNDROME [None]
  - METABOLIC ALKALOSIS [None]
  - DIZZINESS [None]
  - RENIN DECREASED [None]
  - BLOOD PRESSURE DECREASED [None]
